FAERS Safety Report 6088150-8 (Version None)
Quarter: 2009Q1

REPORT INFORMATION
  Report Type: 
  Country: None (occurrence: None)
  Receive Date: 20090224
  Receipt Date: 20090212
  Transmission Date: 20090719
  Serious: Yes (Hospitalization, Other)
  Sender: FDA-Public Use
  Company Number: PHHY2009CA00927

PATIENT
  Sex: Male

DRUGS (7)
  1. CLOZARIL [Suspect]
     Indication: SCHIZOAFFECTIVE DISORDER
     Dosage: 150 MG, QHS
     Route: 048
     Dates: start: 19991026, end: 20090108
  2. ALLOPURINOL [Concomitant]
     Indication: GOUT
  3. COLCHICINE [Concomitant]
     Indication: GOUT
  4. GLUCOPHAGE [Concomitant]
     Indication: DIABETES MELLITUS
  5. SYNTHROID [Concomitant]
  6. LITHIUM [Concomitant]
  7. EPIVAL [Concomitant]
     Dosage: 500 MG, TID

REACTIONS (10)
  - ATONIC URINARY BLADDER [None]
  - ENTEROCOCCAL INFECTION [None]
  - HYPERPLASIA [None]
  - LYMPHOMA [None]
  - NEUTROPENIA [None]
  - NODULE [None]
  - PNEUMONIA [None]
  - PROSTATECTOMY [None]
  - SEPSIS [None]
  - URINARY RETENTION [None]
